FAERS Safety Report 16010978 (Version 1)
Quarter: 2019Q1

REPORT INFORMATION
  Report Type: Spontaneous
  Country: US (occurrence: US)
  Receive Date: 20190227
  Receipt Date: 20190227
  Transmission Date: 20190418
  Serious: No
  Sender: FDA-Public Use
  Company Number: US-AUROBINDO-AUR-APL-2018-052415

PATIENT
  Sex: Female
  Weight: 63.5 kg

DRUGS (1)
  1. CEFDINIR CAPSULES 300 MG [Suspect]
     Active Substance: CEFDINIR
     Indication: PROPHYLAXIS
     Dosage: 300 MILLIGRAM, TWO TIMES A DAY
     Route: 048
     Dates: start: 20181018

REACTIONS (1)
  - Swelling of eyelid [Not Recovered/Not Resolved]
